FAERS Safety Report 20484970 (Version 1)
Quarter: 2022Q1

REPORT INFORMATION
  Report Type: Spontaneous
  Country: US (occurrence: US)
  Receive Date: 20220217
  Receipt Date: 20220217
  Transmission Date: 20220424
  Serious: No
  Sender: FDA-Public Use
  Company Number: US-SA-SAC20220210001169

PATIENT
  Sex: Female

DRUGS (1)
  1. DUPIXENT [Suspect]
     Active Substance: DUPILUMAB
     Indication: Asthma
     Dosage: 300 MG/2ML, QOW
     Route: 058

REACTIONS (5)
  - Blister [Recovered/Resolved]
  - Arthritis [Recovered/Resolved]
  - Corneal oedema [Recovered/Resolved]
  - Rash [Unknown]
  - Arthralgia [Recovered/Resolved]
